FAERS Safety Report 6181506-4 (Version None)
Quarter: 2009Q2

REPORT INFORMATION
  Report Type: 
  Country: None (occurrence: None)
  Receive Date: 20090504
  Receipt Date: 20090415
  Transmission Date: 20091009
  Serious: Yes (Hospitalization)
  Sender: FDA-Public Use
  Company Number: B0569665A

PATIENT
  Age: 65 Year
  Sex: Male

DRUGS (8)
  1. ROSIGLITAZONE MALEATE [Suspect]
     Indication: DRUG USE FOR UNKNOWN INDICATION
  2. METFORMIN HYDROCHLORIDE [Concomitant]
  3. GLICLAZIDE [Concomitant]
  4. COAPROVEL [Concomitant]
  5. AMLODIPINE [Concomitant]
  6. PRAZSOIN HCL [Concomitant]
  7. FENOFIBRATE [Concomitant]
  8. ALLOPURINOL [Concomitant]

REACTIONS (14)
  - ANAEMIA [None]
  - ANOREXIA [None]
  - BLOOD POTASSIUM INCREASED [None]
  - BLOOD SODIUM DECREASED [None]
  - DUODENAL ULCER HAEMORRHAGE [None]
  - DYSLIPIDAEMIA [None]
  - DYSPNOEA [None]
  - FLUID OVERLOAD [None]
  - HAEMODIALYSIS [None]
  - LEFT VENTRICULAR HYPERTROPHY [None]
  - METABOLIC ACIDOSIS [None]
  - ORTHOPNOEA [None]
  - TUBULOINTERSTITIAL NEPHRITIS [None]
  - UPPER GASTROINTESTINAL HAEMORRHAGE [None]
